FAERS Safety Report 9885961 (Version 1)
Quarter: 2014Q1

REPORT INFORMATION
  Report Type: Spontaneous
  Country: US (occurrence: US)
  Receive Date: 20140210
  Receipt Date: 20140210
  Transmission Date: 20141002
  Serious: Yes (Other)
  Sender: FDA-Public Use
  Company Number: US-GLAXOSMITHKLINE-A1060312A

PATIENT
  Age: 4 Year
  Sex: Female

DRUGS (12)
  1. LAMICTAL [Suspect]
     Indication: EPILEPSY
     Route: 065
  2. KEPPRA [Suspect]
     Indication: EPILEPSY
     Route: 065
  3. PHENOBARBITAL [Suspect]
     Indication: EPILEPSY
     Route: 065
  4. TOPAMAX [Suspect]
     Indication: EPILEPSY
     Route: 065
  5. DEPAKOTE [Suspect]
     Indication: EPILEPSY
     Route: 065
  6. TRILEPTAL [Suspect]
     Indication: EPILEPSY
     Route: 065
  7. VIMPAT [Suspect]
     Indication: EPILEPSY
     Route: 065
  8. CARBATROL [Suspect]
     Indication: EPILEPSY
     Route: 065
  9. VALIUM [Suspect]
     Indication: EPILEPSY
     Route: 065
  10. ONFI [Suspect]
     Indication: EPILEPSY
     Route: 065
  11. LEUCOVORIN [Suspect]
     Indication: EPILEPSY
     Route: 065
  12. B6 [Suspect]
     Indication: EPILEPSY
     Route: 065

REACTIONS (3)
  - Convulsion [Unknown]
  - Drug ineffective [Unknown]
  - Adverse drug reaction [Unknown]
